FAERS Safety Report 8977214 (Version 2)
Quarter: 2012Q4

REPORT INFORMATION
  Report Type: Report from Study
  Country: JP (occurrence: JP)
  Receive Date: 20121219
  Receipt Date: 20121224
  Transmission Date: 20130627
  Serious: Yes (Death)
  Sender: FDA-Public Use
  Company Number: PHHY2012JP055357

PATIENT
  Age: 77 Year
  Sex: Female

DRUGS (12)
  1. ICL670A [Suspect]
     Indication: IRON OVERLOAD
     Dosage: 500 mg, daily
     Route: 048
     Dates: start: 20080806, end: 20080818
  2. ICL670A [Suspect]
     Dosage: 125 mg, daily
     Route: 048
     Dates: start: 20090721, end: 20090929
  3. ICL670A [Suspect]
     Dosage: 250 mg, daily
     Route: 048
     Dates: start: 20090930, end: 20100105
  4. ICL670A [Suspect]
     Dosage: 375 mg, daily
     Route: 048
     Dates: start: 20100106, end: 20100316
  5. ICL670A [Suspect]
     Dosage: 500 mg, daily
     Dates: start: 20100317, end: 20100928
  6. DIOVAN [Suspect]
     Indication: HYPERTENSION
     Dosage: 40 mg, UNK
     Route: 048
     Dates: start: 20080806
  7. NEORAL [Concomitant]
     Indication: APLASIA PURE RED CELL
     Dosage: 100 mg, daily
     Route: 048
     Dates: start: 20080806, end: 20080826
  8. LASIX [Concomitant]
     Indication: CARDIAC FAILURE
     Dosage: 10 mg, UNK
     Route: 048
     Dates: start: 20080806
  9. ALFAROL [Concomitant]
     Indication: SPINAL COMPRESSION FRACTURE
     Dosage: 1 ug, UNK
     Route: 048
     Dates: start: 20080806
  10. MEVALOTIN [Concomitant]
     Indication: HYPERLIPIDAEMIA
     Dosage: 10 mg, UNK
     Route: 048
     Dates: start: 20080806
  11. AMLODIN [Concomitant]
     Indication: HYPERTENSION
     Dosage: 2.5 mg, UNK
     Route: 048
     Dates: start: 20080919
  12. THYRADIN [Concomitant]
     Indication: HYPOTHYROIDISM
     Dosage: 50 ug, UNK
     Route: 048
     Dates: start: 20081202

REACTIONS (5)
  - Cerebral haemorrhage [Fatal]
  - Prurigo [Recovered/Resolved]
  - Abdominal distension [Recovering/Resolving]
  - Platelet count decreased [Not Recovered/Not Resolved]
  - Therapeutic response decreased [Unknown]
